FAERS Safety Report 10227728 (Version 1)
Quarter: 2014Q2

REPORT INFORMATION
  Report Type: Spontaneous
  Country: US (occurrence: None)
  Receive Date: 20140606
  Receipt Date: 20140606
  Transmission Date: 20141212
  Serious: Yes (Hospitalization)
  Sender: FDA-Public Use
  Company Number: UNT-2014-001250

PATIENT
  Age: 35 Year
  Sex: Female
  Weight: 94.8 kg

DRUGS (3)
  1. REMODULIN [Suspect]
     Indication: PULMONARY ARTERIAL HYPERTENSION
     Route: 042
     Dates: start: 20140416
  2. COUMAIDN (WARFARIN SODIUM) [Concomitant]
  3. REVATIO ((SILDENAFIL CITRATE) [Concomitant]

REACTIONS (2)
  - Device leakage [None]
  - Drug dose omission [None]
